FAERS Safety Report 12557426 (Version 1)
Quarter: 2016Q3

REPORT INFORMATION
  Report Type: Spontaneous
  Country: US (occurrence: US)
  Receive Date: 20160714
  Receipt Date: 20160714
  Transmission Date: 20161109
  Serious: Yes (Hospitalization)
  Sender: FDA-Public Use
  Company Number: US-IPCA LABORATORIES LIMITED-IPC201607-000601

PATIENT
  Age: 46 Year
  Sex: Male

DRUGS (2)
  1. HYDROCHLOROTHIAZIDE. [Suspect]
     Active Substance: HYDROCHLOROTHIAZIDE
     Indication: HYPERTENSION
  2. TUMS [Suspect]
     Active Substance: CALCIUM CARBONATE
     Indication: PAIN
     Route: 048

REACTIONS (2)
  - Acute kidney injury [Unknown]
  - Milk-alkali syndrome [Unknown]
